FAERS Safety Report 8089198-4 (Version None)
Quarter: 2012Q1

REPORT INFORMATION
  Report Type: 
  Country: None (occurrence: None)
  Receive Date: 20120128
  Receipt Date: 20110616
  Transmission Date: 20120608
  Serious: No
  Sender: FDA-Public Use
  Company Number: US-ABBOTT-11P-163-0732944-00

PATIENT
  Age: 36 Year
  Sex: Male

DRUGS (2)
  1. SULFAZINE [Concomitant]
     Indication: CROHN'S DISEASE
     Dosage: 500 MG-4 TABLETS BID
  2. HUMIRA [Suspect]
     Indication: CROHN'S DISEASE
     Dosage: INITIAL LOADING DOSE
     Dates: start: 20110607

REACTIONS (1)
  - INJECTION SITE PAIN [None]
